FAERS Safety Report 5586325-5 (Version None)
Quarter: 2008Q1

REPORT INFORMATION
  Report Type: 
  Country: None (occurrence: None)
  Receive Date: 20080110
  Receipt Date: 20070107
  Transmission Date: 20080703
  Serious: Yes (Life-Threatening, Hospitalization)
  Sender: FDA-Public Use
  Company Number: SI-BAYER-200810327GPV

PATIENT
  Age: 60 Year
  Sex: Male
  Weight: 95 kg

DRUGS (6)
  1. ULTRAVIST 300 [Suspect]
     Indication: ARTERIOGRAM
     Route: 013
     Dates: start: 20071128
  2. METOPROLOL TARTRATE [Concomitant]
     Route: 048
  3. ASPIRIN PROTECT 100 MG [Concomitant]
     Route: 048
  4. TERTENSIF SR [Concomitant]
     Route: 048
  5. PRAVASTATIN SODIUM [Concomitant]
     Route: 048
  6. TRITACE [Concomitant]
     Route: 048

REACTIONS (4)
  - ANAPHYLACTIC REACTION [None]
  - CYANOSIS [None]
  - DYSPNOEA [None]
  - NAUSEA [None]
